FAERS Safety Report 11755256 (Version 1)
Quarter: 2015Q4

REPORT INFORMATION
  Report Type: Spontaneous
  Country: US (occurrence: None)
  Receive Date: 20151118
  Receipt Date: 20151118
  Transmission Date: 20160304
  Serious: Yes (Disabling, Other)
  Sender: FDA-Public Use
  Company Number: None

PATIENT
  Age: 50 Year
  Sex: Female
  Weight: 81.65 kg

DRUGS (4)
  1. VIT. D [Concomitant]
  2. MAGNESIUM [Concomitant]
     Active Substance: MAGNESIUM
  3. NEXIUM [Suspect]
     Active Substance: ESOMEPRAZOLE MAGNESIUM
     Dosage: 1 PILL ONCE DAILY TAKEN BY MOUTH
     Route: 048
  4. AMOXICILLIN. [Suspect]
     Active Substance: AMOXICILLIN
     Indication: SINUSITIS

REACTIONS (5)
  - Clostridium test positive [None]
  - Depression [None]
  - Palpitations [None]
  - Diarrhoea [None]
  - Dyspnoea [None]

NARRATIVE: CASE EVENT DATE: 20151102
